FAERS Safety Report 7269560-X (Version None)
Quarter: 2011Q1

REPORT INFORMATION
  Report Type: 
  Country: None (occurrence: None)
  Receive Date: 20110125
  Receipt Date: 20110114
  Transmission Date: 20110831
  Serious: Yes (Hospitalization)
  Sender: FDA-Public Use
  Company Number: 025461

PATIENT
  Sex: Male

DRUGS (5)
  1. PLAVIX [Suspect]
     Indication: CEREBROVASCULAR ACCIDENT
     Dosage: 75 MG ORAL
     Route: 048
  2. AMLODIPINE [Suspect]
     Indication: HYPERTENSION
     Dosage: 5 MG ORAL
     Route: 048
  3. KEPPRA [Suspect]
     Indication: EPILEPSY
     Dosage: 500 MG ORAL
     Route: 048
     Dates: start: 20101012
  4. INEXIUM /01479302/ (INEXIUM) (NOT SPECIFIED) [Suspect]
     Dosage: 20 MG ORAL
     Route: 048
  5. CRESTOR [Suspect]
     Indication: HYPERLIPIDAEMIA
     Dosage: 5 MG

REACTIONS (5)
  - C-REACTIVE PROTEIN INCREASED [None]
  - TOXIC SKIN ERUPTION [None]
  - RASH MACULO-PAPULAR [None]
  - INFECTION [None]
  - LYMPHADENOPATHY [None]
